FAERS Safety Report 14595504 (Version 4)
Quarter: 2020Q4

REPORT INFORMATION
  Report Type: Spontaneous
  Country: US (occurrence: US)
  Receive Date: 20180302
  Receipt Date: 20201123
  Transmission Date: 20210113
  Serious: Yes (Death, Hospitalization)
  Sender: FDA-Public Use
  Company Number: US-JNJFOC-20180226635

PATIENT
  Age: 88 Year
  Sex: Female

DRUGS (4)
  1. WARFARIN [Suspect]
     Active Substance: WARFARIN
     Route: 065
  2. XARELTO [Suspect]
     Active Substance: RIVAROXABAN
     Indication: CEREBROVASCULAR ACCIDENT PROPHYLAXIS
     Route: 048
     Dates: start: 20151231, end: 20160219
  3. XARELTO [Suspect]
     Active Substance: RIVAROXABAN
     Indication: ATRIAL FIBRILLATION
  4. XARELTO [Suspect]
     Active Substance: RIVAROXABAN
     Indication: THROMBOSIS PROPHYLAXIS

REACTIONS (3)
  - Gastrointestinal haemorrhage [Recovering/Resolving]
  - Acute kidney injury [Recovering/Resolving]
  - Shock haemorrhagic [Recovering/Resolving]

NARRATIVE: CASE EVENT DATE: 20160219
